FAERS Safety Report 15718953 (Version 1)
Quarter: 2018Q4

REPORT INFORMATION
  Report Type: Spontaneous
  Country: LB (occurrence: LB)
  Receive Date: 20181213
  Receipt Date: 20181213
  Transmission Date: 20190205
  Serious: Yes (Death, Other)
  Sender: FDA-Public Use
  Company Number: LB-009507513-1812LBN004999

PATIENT
  Sex: Male
  Weight: 70 kg

DRUGS (1)
  1. BRIDION [Suspect]
     Active Substance: SUGAMMADEX
     Indication: NEUROMUSCULAR BLOCKADE REVERSAL
     Dosage: 1000 MG
     Dates: start: 20181126, end: 20181126

REACTIONS (1)
  - Death [Fatal]

NARRATIVE: CASE EVENT DATE: 20181207
